FAERS Safety Report 12288377 (Version 1)
Quarter: 2016Q2

REPORT INFORMATION
  Report Type: Spontaneous
  Country: US (occurrence: US)
  Receive Date: 20160420
  Receipt Date: 20160420
  Transmission Date: 20160815
  Serious: No
  Sender: FDA-Public Use
  Company Number: US-ASTELLAS-2015US031191

PATIENT
  Age: 32 Year
  Sex: Female
  Weight: 63 kg

DRUGS (1)
  1. TACROLIMUS OINTMENT [Suspect]
     Active Substance: TACROLIMUS
     Indication: ECZEMA
     Dosage: SMALL AMOUNT, SINGLE, UNKNOWN FREQ.
     Route: 061
     Dates: start: 20150820, end: 20150820

REACTIONS (5)
  - Application site pruritus [Recovered/Resolved]
  - Contusion [Recovered/Resolved]
  - Application site pain [Recovered/Resolved]
  - Skin abrasion [Recovered/Resolved]
  - Off label use [Unknown]

NARRATIVE: CASE EVENT DATE: 20150820
